FAERS Safety Report 6739209-0 (Version None)
Quarter: 2010Q2

REPORT INFORMATION
  Report Type: 
  Country: None (occurrence: None)
  Receive Date: 20100525
  Receipt Date: 20100520
  Transmission Date: 20101027
  Serious: Yes (Other)
  Sender: FDA-Public Use
  Company Number: US-JNJFOC-20100506617

PATIENT
  Age: 22 Month
  Sex: Male

DRUGS (3)
  1. CONCENTRATED TYLENOL INFANT DROPS [Suspect]
     Indication: TEETHING
     Route: 048
     Dates: start: 20100504, end: 20100505
  2. CONCENTRATED TYLENOL INFANT DROPS [Suspect]
     Indication: IRRITABILITY
     Route: 048
     Dates: start: 20100504, end: 20100505
  3. ACETAMINOPHEN [Suspect]
     Indication: PYREXIA

REACTIONS (5)
  - BACTERIAL TEST [None]
  - PRODUCT CONTAMINATION PHYSICAL [None]
  - PYREXIA [None]
  - STAPHYLOCOCCAL INFECTION [None]
  - TRANSMISSION OF AN INFECTIOUS AGENT VIA A MEDICINAL PRODUCT [None]
